FAERS Safety Report 5878359-8 (Version None)
Quarter: 2008Q3

REPORT INFORMATION
  Report Type: 
  Country: None (occurrence: None)
  Receive Date: 20080911
  Receipt Date: 20080903
  Transmission Date: 20090109
  Serious: Yes (Hospitalization)
  Sender: FDA-Public Use
  Company Number: JP-PFIZER INC-2008072785

PATIENT
  Age: 58 Year
  Sex: Male

DRUGS (1)
  1. NORVASC [Suspect]
     Route: 048
     Dates: start: 20080601, end: 20080701

REACTIONS (1)
  - GAIT DISTURBANCE [None]
